FAERS Safety Report 8488943-3 (Version None)
Quarter: 2012Q3

REPORT INFORMATION
  Report Type: 
  Country: None (occurrence: None)
  Receive Date: 20120705
  Receipt Date: 20110119
  Transmission Date: 20120928
  Serious: Yes (Other)
  Sender: FDA-Public Use
  Company Number: JP-ROCHE-755823

PATIENT

DRUGS (1)
  1. MABTHERA [Suspect]
     Indication: LYMPHOMA
     Route: 064

REACTIONS (2)
  - LOW BIRTH WEIGHT BABY [None]
  - MATERNAL EXPOSURE DURING PREGNANCY [None]
